FAERS Safety Report 19711629 (Version 1)
Quarter: 2021Q3

REPORT INFORMATION
  Report Type: Report from Study
  Country: US (occurrence: US)
  Receive Date: 20210816
  Receipt Date: 20210816
  Transmission Date: 20211014
  Serious: No
  Sender: FDA-Public Use
  Company Number: US-TG THERAPEUTICS INC.-TGT002005

PATIENT
  Age: 85 Year
  Sex: Female

DRUGS (1)
  1. UMBRALISIB [Suspect]
     Active Substance: UMBRALISIB
     Indication: FOLLICULAR LYMPHOMA
     Dosage: 800 MILLIGRAM, QD
     Route: 048

REACTIONS (1)
  - Hypoaesthesia [Unknown]
